FAERS Safety Report 5472596-2 (Version None)
Quarter: 2007Q4

REPORT INFORMATION
  Report Type: 
  Country: None (occurrence: None)
  Receive Date: 20071001
  Receipt Date: 20061023
  Transmission Date: 20080405
  Serious: No
  Sender: FDA-Public Use
  Company Number: US-ASTRAZENECA-2005UW11032

PATIENT
  Sex: Female

DRUGS (7)
  1. ARIMIDEX [Suspect]
     Indication: BREAST CANCER IN SITU
     Route: 048
  2. LIPITOR [Concomitant]
  3. LYCINE [Concomitant]
     Indication: ORAL HERPES
  4. DIOVAN [Concomitant]
  5. GLYBURIDE [Concomitant]
  6. COLACE [Concomitant]
  7. ASPIRIN [Concomitant]

REACTIONS (5)
  - BLOOD GLUCOSE INCREASED [None]
  - BONE PAIN [None]
  - FATIGUE [None]
  - HOT FLUSH [None]
  - INSOMNIA [None]
